FAERS Safety Report 9399878 (Version 2)
Quarter: 2013Q4

REPORT INFORMATION
  Report Type: Spontaneous
  Country: IT (occurrence: IT)
  Receive Date: 20130715
  Receipt Date: 20131011
  Transmission Date: 20140711
  Serious: Yes (Other)
  Sender: FDA-Public Use
  Company Number: PHHY2013IT074347

PATIENT
  Age: 61 Year
  Sex: Female

DRUGS (1)
  1. ZOMETA [Suspect]
     Indication: METASTASES TO BONE
     Dosage: 1 POSOLOGIC UNIT, CYCLE
     Dates: start: 20090404, end: 20130604

REACTIONS (2)
  - Osteonecrosis of jaw [Not Recovered/Not Resolved]
  - Abscess neck [Unknown]
